FAERS Safety Report 11784897 (Version 2)
Quarter: 2016Q1

REPORT INFORMATION
  Report Type: Report from Study
  Country: US (occurrence: US)
  Receive Date: 20151130
  Receipt Date: 20160222
  Transmission Date: 20160525
  Serious: Yes (Hospitalization)
  Sender: FDA-Public Use
  Company Number: US-ALEXION-A201504625

PATIENT
  Sex: Female

DRUGS (1)
  1. SOLIRIS [Suspect]
     Active Substance: ECULIZUMAB
     Indication: HAEMOLYTIC URAEMIC SYNDROME
     Dosage: 600 MG, Q2W
     Route: 042

REACTIONS (3)
  - Dizziness [Not Recovered/Not Resolved]
  - Dysphagia [Recovering/Resolving]
  - Rash pruritic [Unknown]

NARRATIVE: CASE EVENT DATE: 20151110
